FAERS Safety Report 8809023 (Version 1)
Quarter: 2012Q4

REPORT INFORMATION
  Report Type: 
  Country: US (occurrence: US)
  Receive Date: 20120926
  Receipt Date: 20120926
  Transmission Date: 20130627
  Serious: Yes (Hospitalization, Other)
  Sender: FDA-Public Use
  Company Number: US-AMGEN-USASP2012060619

PATIENT
  Age: 58 Year
  Sex: Female

DRUGS (2)
  1. ENBREL [Suspect]
     Indication: PSORIATIC ARTHROPATHY
     Dosage: UNK
     Dates: start: 20051001, end: 20110101
  2. ENBREL [Suspect]
     Indication: PSORIASIS

REACTIONS (6)
  - Coronary artery disease [Recovered/Resolved]
  - Cardiomyopathy [Recovered/Resolved]
  - Ventricular dysfunction [Recovered/Resolved]
  - Myocardial infarction [Recovered/Resolved]
  - Arthralgia [Not Recovered/Not Resolved]
  - Psoriasis [Not Recovered/Not Resolved]
